FAERS Safety Report 9559796 (Version 1)
Quarter: 2013Q3

REPORT INFORMATION
  Report Type: Spontaneous
  Country: US (occurrence: None)
  Receive Date: 20130821
  Receipt Date: 20130821
  Transmission Date: 20140515
  Serious: Yes (Other)
  Sender: FDA-Public Use
  Company Number: 1000045819

PATIENT
  Age: 58 Year
  Sex: Female

DRUGS (7)
  1. TUDORZA PRESSAIR (ACLIDINIUM BROMIDE) (400 MICROGRAM, POWDER) [Suspect]
     Indication: CHRONIC OBSTRUCTIVE PULMONARY DISEASE
     Route: 055
     Dates: start: 201305
  2. SYNTHROID (LEVOTHYROXINE SODIUM) [Concomitant]
  3. FISH OIL (FISH OIL) [Concomitant]
  4. ASPIRIN (ACETYLSALICYLIC ACID) [Concomitant]
  5. SINGULAIR [Concomitant]
  6. ALEVE (NAPROXEN SODIUM) [Concomitant]
  7. SYMBICORT [Concomitant]

REACTIONS (2)
  - Goitre [None]
  - Dysphagia [None]
